FAERS Safety Report 17539049 (Version 1)
Quarter: 2020Q1

REPORT INFORMATION
  Report Type: Report from Study
  Country: GB (occurrence: GB)
  Receive Date: 20200313
  Receipt Date: 20200313
  Transmission Date: 20200409
  Serious: Yes (Other)
  Sender: FDA-Public Use
  Company Number: GB-EMD SERONO-9031033

PATIENT
  Sex: Male

DRUGS (1)
  1. SAIZEN [Suspect]
     Active Substance: SOMATROPIN
     Indication: GROWTH HORMONE DEFICIENCY
     Dosage: CARTRIDGES AND LATER PRE-FILLED AUTOINJECTOR
     Route: 058
     Dates: start: 20110602

REACTIONS (9)
  - Aggression [Unknown]
  - Lethargy [Unknown]
  - Anxiety [Unknown]
  - Vitamin D decreased [Unknown]
  - Blood iron decreased [Unknown]
  - Fatigue [Unknown]
  - Depression [Unknown]
  - Drug abuse [Unknown]
  - Mood swings [Unknown]
